FAERS Safety Report 8935466 (Version 1)
Quarter: 2012Q4

REPORT INFORMATION
  Report Type: Spontaneous
  Country: US (occurrence: None)
  Receive Date: 20121128
  Receipt Date: 20121128
  Transmission Date: 20130627
  Serious: Yes (Hospitalization)
  Sender: FDA-Public Use
  Company Number: None

PATIENT
  Age: 41 None
  Sex: Female
  Weight: 138.8 kg

DRUGS (8)
  1. WARFARIN [Suspect]
     Indication: LUPUS ANTICOAGULANT
     Dosage: 7.5MG DAILY PO
     Route: 048
  2. ADVAIR DISKUS [Concomitant]
  3. VENTOLIN HFA [Concomitant]
  4. ZYRTEC [Concomitant]
  5. CA+D [Concomitant]
  6. CENTRUM [Concomitant]
  7. VIT B12 [Concomitant]
  8. FERROUS SULFATE [Concomitant]

REACTIONS (3)
  - Lower gastrointestinal haemorrhage [None]
  - Haemorrhagic anaemia [None]
  - Anastomotic ulcer [None]
